FAERS Safety Report 6832984-6 (Version None)
Quarter: 2010Q3

REPORT INFORMATION
  Report Type: 
  Country: None (occurrence: None)
  Receive Date: 20100712
  Receipt Date: 20100528
  Transmission Date: 20110219
  Serious: No
  Sender: FDA-Public Use
  Company Number: US-BIOGENIDEC-2010BI018238

PATIENT
  Sex: Male

DRUGS (3)
  1. AVONEX [Suspect]
     Indication: MULTIPLE SCLEROSIS
     Route: 030
     Dates: start: 20030507
  2. AVONEX [Suspect]
     Route: 030
     Dates: start: 20040902, end: 20060310
  3. AVONEX [Suspect]
     Route: 030

REACTIONS (2)
  - GAIT DISTURBANCE [None]
  - MUSCULAR WEAKNESS [None]
